FAERS Safety Report 14205296 (Version 1)
Quarter: 2017Q4

REPORT INFORMATION
  Report Type: Spontaneous
  Country: RU (occurrence: RU)
  Receive Date: 20171120
  Receipt Date: 20171120
  Transmission Date: 20180321
  Serious: Yes (Life-Threatening)
  Sender: FDA-Public Use
  Company Number: RU-ASTRAZENECA-2017SF17871

PATIENT
  Age: 55 Year
  Sex: Male
  Weight: 90 kg

DRUGS (4)
  1. BRILINTA [Suspect]
     Active Substance: TICAGRELOR
     Indication: MYOCARDIAL INFARCTION
     Route: 048
     Dates: start: 201503, end: 201612
  2. THROMBO ASS [Concomitant]
     Active Substance: ASPIRIN
  3. BRILINTA [Suspect]
     Active Substance: TICAGRELOR
     Indication: MYOCARDIAL INFARCTION
     Dosage: 90 MG, TWO TIMES A DAY, RECEIVING BRILINTA ACCORDING TO THE SCHEDULE: RECEIVING 3 MONTHS, NOT REC...
     Route: 048
     Dates: start: 201612
  4. BETALOC ZOK [Concomitant]
     Active Substance: METOPROLOL SUCCINATE

REACTIONS (4)
  - Off label use [Unknown]
  - Weight increased [Recovered/Resolved]
  - Product use issue [Unknown]
  - Myocardial infarction [Recovered/Resolved]

NARRATIVE: CASE EVENT DATE: 201601
